FAERS Safety Report 5135157-0 (Version None)
Quarter: 2006Q4

REPORT INFORMATION
  Report Type: 
  Country: None (occurrence: None)
  Receive Date: 20060831
  Receipt Date: 20050902
  Transmission Date: 20070319
  Serious: Yes (Other)
  Sender: FDA-Public Use
  Company Number: 2005124202

PATIENT
  Sex: Female

DRUGS (1)
  1. DETROL LA [Suspect]
     Indication: ILL-DEFINED DISORDER
     Dosage: UNK ( 4 MG), UNKNOWN

REACTIONS (3)
  - BACK PAIN [None]
  - MICTURITION URGENCY [None]
  - URINARY RETENTION [None]
